FAERS Safety Report 24314691 (Version 3)
Quarter: 2024Q4

REPORT INFORMATION
  Report Type: Spontaneous
  Country: FR (occurrence: FR)
  Receive Date: 20240913
  Receipt Date: 20241015
  Transmission Date: 20250114
  Serious: Yes (Other)
  Sender: LEO PHARM
  Company Number: FR-LEO Pharma-373389

PATIENT
  Age: 79 Year
  Sex: Male

DRUGS (3)
  1. PROTOPIC [Suspect]
     Active Substance: TACROLIMUS
     Indication: Herpes zoster
     Dosage: 1 APPLICATION DAILY IN THE EVENING, PROTOPIC 0.1%
     Route: 003
     Dates: start: 20240903, end: 20240905
  2. PROTOPIC [Suspect]
     Active Substance: TACROLIMUS
     Indication: Herpes zoster
     Dosage: 1 APPLICATION DAILY IN THE EVENING, PROTOPIC 0.1%
     Route: 003
     Dates: start: 20240903, end: 20240905
  3. PROTOPIC [Suspect]
     Active Substance: TACROLIMUS
     Indication: Herpes zoster
     Dosage: 1 APPLICATION DAILY IN THE EVENING, PROTOPIC 0.1%
     Route: 003
     Dates: start: 20240903, end: 20240905

REACTIONS (4)
  - Eyelid oedema [Recovered/Resolved]
  - Application site pain [Recovered/Resolved]
  - Off label use [Unknown]
  - Eye infection intraocular [Recovered/Resolved]

NARRATIVE: CASE EVENT DATE: 20240903
